FAERS Safety Report 5431270-9 (Version None)
Quarter: 2007Q3

REPORT INFORMATION
  Report Type: 
  Country: None (occurrence: None)
  Receive Date: 20070828
  Receipt Date: 20070815
  Transmission Date: 20080115
  Serious: Yes (Hospitalization)
  Sender: FDA-Public Use
  Company Number: 2007US001718

PATIENT
  Age: 88 Year
  Sex: Female

DRUGS (15)
  1. VESICARE (ISOLIFENACIN) TABLET, 5MG [Suspect]
     Indication: URGE INCONTINENCE
     Dosage: 5 MG. UID/QD, ORAL; 5 MG, UID/QD, ORAL
     Route: 048
     Dates: start: 20070601, end: 20070601
  2. VESICARE (ISOLIFENACIN) TABLET, 5MG [Suspect]
     Indication: URGE INCONTINENCE
     Dosage: 5 MG. UID/QD, ORAL; 5 MG, UID/QD, ORAL
     Route: 048
     Dates: start: 20070710, end: 20070726
  3. ATENDOL (ATENOLOL) [Concomitant]
  4. ATACAND HCT (CANDESARTAN CILEXETIL) [Concomitant]
  5. LIPITOR [Concomitant]
  6. ARIMIDEX [Concomitant]
  7. XALATAN [Concomitant]
  8. ALPHAGAN P [Concomitant]
  9. AZOPT [Concomitant]
  10. CALCIUM WITH VITAMIN D (ERGOCALCIFEROL, CALCIUM SODIUM LACTATE, CALCIU [Concomitant]
  11. SINEMET (CARBIDOPA) [Concomitant]
  12. LUMIGAN [Concomitant]
  13. DIFLUNISAL [Concomitant]
  14. ACTONEL [Concomitant]
  15. ASPIRIN [Concomitant]

REACTIONS (4)
  - CONSTIPATION [None]
  - DIVERTICULITIS [None]
  - NAUSEA [None]
  - VOMITING [None]
